FAERS Safety Report 11319290 (Version 1)
Quarter: 2015Q3

REPORT INFORMATION
  Report Type: Spontaneous
  Country: US (occurrence: None)
  Receive Date: 20150728
  Receipt Date: 20150728
  Transmission Date: 20151125
  Serious: Yes (Death)
  Sender: FDA-Public Use
  Company Number: None

PATIENT
  Age: 83 Year
  Sex: Male
  Weight: 110.5 kg

DRUGS (1)
  1. NAFCILLIN [Suspect]
     Active Substance: NAFCILLIN\NAFCILLIN SODIUM
     Indication: INFECTION
     Dosage: 2 GM  OTHER  IV
     Route: 042
     Dates: start: 20140731, end: 20140812

REACTIONS (6)
  - Metabolic acidosis [None]
  - Respiratory failure [None]
  - Diarrhoea [None]
  - Acute kidney injury [None]
  - Dehydration [None]
  - Respiratory acidosis [None]

NARRATIVE: CASE EVENT DATE: 20140812
